FAERS Safety Report 18052499 (Version 1)
Quarter: 2020Q3

REPORT INFORMATION
  Report Type: Spontaneous
  Country: ES (occurrence: ES)
  Receive Date: 20200721
  Receipt Date: 20200721
  Transmission Date: 20201103
  Serious: Yes (Other)
  Sender: FDA-Public Use
  Company Number: NVSC2020ES204942

PATIENT
  Age: 87 Year
  Sex: Male

DRUGS (1)
  1. PREDNISONE. [Suspect]
     Active Substance: PREDNISONE
     Indication: GIANT CELL ARTERITIS
     Dosage: 30 MG, QD
     Route: 065

REACTIONS (1)
  - Kaposi^s sarcoma [Unknown]
